FAERS Safety Report 7488086-1 (Version None)
Quarter: 2011Q2

REPORT INFORMATION
  Report Type: 
  Country: None (occurrence: None)
  Receive Date: 20110518
  Receipt Date: 20110516
  Transmission Date: 20111010
  Serious: Yes (Other)
  Sender: FDA-Public Use
  Company Number: JP-PFIZER INC-2011104027

PATIENT
  Sex: Female

DRUGS (1)
  1. ZOLOFT [Suspect]
     Dosage: UNK
     Route: 048
     Dates: start: 20110401

REACTIONS (6)
  - TREMOR [None]
  - NIGHT SWEATS [None]
  - MYOCLONUS [None]
  - HEADACHE [None]
  - SLEEP DISORDER [None]
  - NIGHTMARE [None]
